FAERS Safety Report 19734989 (Version 3)
Quarter: 2022Q2

REPORT INFORMATION
  Report Type: Spontaneous
  Country: US (occurrence: US)
  Receive Date: 20210823
  Receipt Date: 20220519
  Transmission Date: 20220720
  Serious: No
  Sender: FDA-Public Use
  Company Number: US-PFIZER INC-2021743008

PATIENT
  Age: 60 Year
  Sex: Female

DRUGS (2)
  1. IBRANCE [Suspect]
     Active Substance: PALBOCICLIB
     Indication: Breast cancer female
     Dosage: 125 MG, DAILY
     Dates: start: 20210401
  2. IBRANCE [Suspect]
     Active Substance: PALBOCICLIB
     Indication: Agranulocytosis
     Dosage: 125 MG, CYCLIC
     Dates: start: 20210402

REACTIONS (5)
  - Nausea [Unknown]
  - Deficiency anaemia [Unknown]
  - Product dose omission issue [Unknown]
  - Blood potassium decreased [Unknown]
  - Blood magnesium decreased [Unknown]
